FAERS Safety Report 11523183 (Version 5)
Quarter: 2016Q3

REPORT INFORMATION
  Report Type: Report from Study
  Country: US (occurrence: US)
  Receive Date: 20150918
  Receipt Date: 20160923
  Transmission Date: 20161109
  Serious: Yes (Hospitalization, Other)
  Sender: FDA-Public Use
  Company Number: US-BAYER-2015-419243

PATIENT
  Age: 14 Year
  Sex: Male

DRUGS (7)
  1. ETOPOSIDE. [Concomitant]
     Active Substance: ETOPOSIDE
  2. NEXAVAR [Suspect]
     Active Substance: SORAFENIB
     Indication: ACUTE MYELOID LEUKAEMIA
     Dosage: 350 MG, QD
     Route: 048
     Dates: start: 20150801, end: 20150829
  3. ACYCLOVIR [ACICLOVIR] [Concomitant]
     Active Substance: ACYCLOVIR
  4. CYTARABINE. [Concomitant]
     Active Substance: CYTARABINE
  5. DAUNORUBICIN [Concomitant]
     Active Substance: DAUNORUBICIN
  6. NEXAVAR [Suspect]
     Active Substance: SORAFENIB
     Indication: ACUTE MYELOID LEUKAEMIA
     Dosage: 200 MG, BID
     Route: 048
  7. CASPOFUNGIN [Concomitant]
     Active Substance: CASPOFUNGIN

REACTIONS (11)
  - Malaise [None]
  - Pancytopenia [None]
  - Hypoaesthesia [Not Recovered/Not Resolved]
  - Infection [None]
  - Bone marrow transplant [None]
  - Dysaesthesia [None]
  - Hypertension [None]
  - Hypoaesthesia [Recovered/Resolved]
  - Off label use [None]
  - Pain in extremity [None]
  - Hospitalisation [None]

NARRATIVE: CASE EVENT DATE: 20150821
